FAERS Safety Report 7205114-9 (Version None)
Quarter: 2010Q4

REPORT INFORMATION
  Report Type: 
  Country: None (occurrence: None)
  Receive Date: 20101230
  Receipt Date: 20101103
  Transmission Date: 20110411
  Serious: Yes (Death, Hospitalization, Other)
  Sender: FDA-Public Use
  Company Number: US-AMGEN-USASP2010001275

PATIENT

DRUGS (3)
  1. NPLATE [Suspect]
     Indication: IDIOPATHIC THROMBOCYTOPENIC PURPURA
     Dates: start: 20090728, end: 20100908
  2. NPLATE [Suspect]
     Dates: start: 20090728, end: 20100908
  3. CORTICOSTEROIDS [Concomitant]
     Indication: IDIOPATHIC THROMBOCYTOPENIC PURPURA
     Dosage: UNK
     Dates: start: 20090503

REACTIONS (4)
  - PNEUMONIA [None]
  - RESPIRATORY FAILURE [None]
  - THROMBOPHLEBITIS SUPERFICIAL [None]
  - VENOUS THROMBOSIS LIMB [None]
